FAERS Safety Report 17572811 (Version 1)
Quarter: 2020Q1

REPORT INFORMATION
  Report Type: Spontaneous
  Country: US (occurrence: US)
  Receive Date: 20200323
  Receipt Date: 20200323
  Transmission Date: 20200409
  Serious: No
  Sender: FDA-Public Use
  Company Number: US-CARDINAL HEALTH 414-CAHLYMPH-AE-19-30

PATIENT
  Age: 54 Year
  Sex: Female
  Weight: 76 kg

DRUGS (1)
  1. LYMPHOSEEK [Suspect]
     Active Substance: TECHNETIUM TC-99M TILMANOCEPT
     Indication: LYMPHATIC MAPPING
     Dates: start: 20190904, end: 20190904

REACTIONS (2)
  - Injection site pruritus [Unknown]
  - Urticaria [Unknown]

NARRATIVE: CASE EVENT DATE: 20190904
